FAERS Safety Report 9666153 (Version 3)
Quarter: 2014Q2

REPORT INFORMATION
  Report Type: Spontaneous
  Country: JP (occurrence: JP)
  Receive Date: 20131104
  Receipt Date: 20140618
  Transmission Date: 20141212
  Serious: Yes (Life-Threatening, Hospitalization, Other)
  Sender: FDA-Public Use
  Company Number: JP-009507513-1309JPN007117

PATIENT
  Age: 79 Year
  Sex: Male
  Weight: 69 kg

DRUGS (20)
  1. BRIDION INTRAVENOUS 200MG [Suspect]
     Indication: NEUROMUSCULAR BLOCKADE REVERSAL
     Dosage: 200 MG , QD (ALSO REPORTED AS UNKNOWN)
     Route: 042
     Dates: start: 20130912, end: 20130912
  2. ESLAX INTRAVENOUS 25MG/2.5ML [Suspect]
     Indication: NEUROMUSCULAR BLOCKING THERAPY
     Dosage: DAILY DOSAGE UNKNOWN
     Route: 042
     Dates: start: 20130912, end: 20130912
  3. SEVOFLURANE [Concomitant]
     Dosage: DAILY DOSE UNKNOWN
     Route: 065
  4. ULTIVA [Concomitant]
     Dosage: DAILY DOSE UNKNOWN/0.2 UG/KIG/MIN
     Route: 051
  5. ATROPINE [Concomitant]
     Dosage: DAILY DOSE UNKNOWN
     Route: 065
  6. NEOSYNESIN [Concomitant]
     Dosage: DAILY DOSE UNKNOWN
     Route: 065
  7. DOPAMINE HYDROCHLORIDE [Concomitant]
     Dosage: DAILY DOSE UNKNOWN
     Route: 065
  8. HANP [Concomitant]
     Dosage: DAILY DOSE UNKNOWN
     Route: 051
  9. MILLISROL [Concomitant]
     Dosage: DAILY DOSE UNKNOWN
     Route: 065
  10. FENTANYL CITRATE [Concomitant]
     Dosage: DAILY DOSE UNKNOWN
     Route: 065
  11. PROPOFOL [Concomitant]
     Dosage: DAILY DOSE UNKNOWN
     Route: 051
  12. SULBACILLIN [Concomitant]
     Dosage: DAILY DOSE UNKNOWN
     Route: 051
  13. BAYASPIRIN [Concomitant]
     Dosage: FORMULATION:POR,DAILY DOSE UNKNOWN
     Route: 048
  14. OPALMON [Concomitant]
     Dosage: FORMULATION:POR,DAILY DOSE UNKNOWN
     Route: 048
  15. MICOMBI [Concomitant]
     Dosage: FORMULATION POR/DAILY DOSE UNKNOWN
     Route: 048
  16. FLIVAS [Concomitant]
     Dosage: FORMULATION:POR,DAILY DOSE UNKNOWN
     Route: 048
  17. FEBURIC [Concomitant]
     Dosage: FORMULATION:POR,DAILY DOSE UNKNOWN,
     Route: 048
  18. FERROMIA [Concomitant]
     Dosage: FORMULATION:POR,DAILY DOSE UNKNOWN,
     Route: 048
  19. PHENYLEPHRINE HYDROCHLORIDE [Concomitant]
     Dosage: DAILY DOSE UNKNOWN
     Route: 065
  20. SOLU-MEDROL [Concomitant]
     Dosage: DAILY DOSAGE UNKNOWN
     Route: 042
     Dates: start: 20130912

REACTIONS (8)
  - Cardiac arrest [Recovering/Resolving]
  - Ventricular fibrillation [Unknown]
  - Anaphylactic shock [Recovering/Resolving]
  - Incorrect product storage [Unknown]
  - Sepsis [Unknown]
  - Renal failure [Unknown]
  - Cardiac massage [Unknown]
  - Cardioversion [Unknown]
